FAERS Safety Report 10369044 (Version 3)
Quarter: 2014Q3

REPORT INFORMATION
  Report Type: Spontaneous
  Country: FI (occurrence: FI)
  Receive Date: 20140807
  Receipt Date: 20140923
  Transmission Date: 20150326
  Serious: Yes (Other)
  Sender: FDA-Public Use
  Company Number: FI-BAYER-2014-113864

PATIENT
  Sex: Female

DRUGS (3)
  1. CANESTEN KOMBI [Suspect]
     Active Substance: CLOTRIMAZOLE
     Dosage: UNK
     Dates: start: 20140728
  2. CANESTEN KOMBI [Suspect]
     Active Substance: CLOTRIMAZOLE
     Dosage: UNK
     Dates: start: 20140728
  3. CANESTEN KOMBI [Suspect]
     Active Substance: CLOTRIMAZOLE
     Dosage: UNK
     Dates: start: 20140728

REACTIONS (2)
  - Vulvovaginal injury [None]
  - Device breakage [None]
